FAERS Safety Report 9705435 (Version 1)
Quarter: 2013Q4

REPORT INFORMATION
  Report Type: Report from Study
  Country: US (occurrence: US)
  Receive Date: 20131122
  Receipt Date: 20131122
  Transmission Date: 20140711
  Serious: Yes (Death, Hospitalization, Other)
  Sender: FDA-Public Use
  Company Number: US-WATSON-2012-21211

PATIENT
  Age: 67 Year
  Sex: Male

DRUGS (11)
  1. DOCETAXEL (UNKNOWN) [Suspect]
     Indication: PROSTATE CANCER
     Dosage: UNK
     Route: 065
     Dates: end: 20090619
  2. BICALUTAMIDE (ATLLC) [Suspect]
     Indication: PROSTATE CANCER
     Dosage: UNK
     Route: 048
     Dates: start: 20100707
  3. BEVACIZUMAB [Suspect]
     Indication: PROSTATE CANCER
     Dosage: (15 MG/ KG, 1 IN 3 WK)
     Route: 042
     Dates: start: 20090715, end: 20091118
  4. LEUPRORELIN [Suspect]
     Indication: PROSTATE CANCER
     Dosage: (22.5 MG, 1 IN 3 M)
     Route: 030
     Dates: start: 20090715, end: 20100331
  5. LISINOPRIL [Concomitant]
     Indication: PRODUCT USED FOR UNKNOWN INDICATION
     Dosage: ^DOSE DOUBLED ON 17-JUN-2010^
     Route: 065
  6. CARVEDILOL [Concomitant]
     Indication: PRODUCT USED FOR UNKNOWN INDICATION
     Dosage: ^DOSE DOUBLED ON 17-JUN-2010^
     Route: 065
  7. LASIX                              /00032601/ [Concomitant]
     Indication: PRODUCT USED FOR UNKNOWN INDICATION
     Dosage: UNK
     Route: 065
  8. AVELOX [Concomitant]
     Indication: PRODUCT USED FOR UNKNOWN INDICATION
     Dosage: UNK
     Route: 065
  9. ATACAND [Concomitant]
     Indication: PRODUCT USED FOR UNKNOWN INDICATION
     Dosage: UNK
     Route: 065
  10. COUMADIN                           /00014802/ [Concomitant]
     Indication: PRODUCT USED FOR UNKNOWN INDICATION
     Dosage: UNK
     Route: 065
  11. FISH OIL [Concomitant]
     Indication: PRODUCT USED FOR UNKNOWN INDICATION
     Dosage: UNK
     Route: 065

REACTIONS (3)
  - Atrial thrombosis [Fatal]
  - Cardiac amyloidosis [Fatal]
  - Syncope [Fatal]
